FAERS Safety Report 8510620-0 (Version None)
Quarter: 2012Q3

REPORT INFORMATION
  Report Type: 
  Country: None (occurrence: None)
  Receive Date: 20120716
  Receipt Date: 20120704
  Transmission Date: 20120928
  Serious: No
  Sender: FDA-Public Use
  Company Number: US-BIOGENIDEC-2012BI024145

PATIENT
  Sex: Male

DRUGS (1)
  1. AVONEX [Suspect]
     Indication: MULTIPLE SCLEROSIS
     Route: 030
     Dates: start: 20120619

REACTIONS (5)
  - FEELING COLD [None]
  - PARAESTHESIA [None]
  - TREMOR [None]
  - INFLUENZA LIKE ILLNESS [None]
  - PAIN [None]
